FAERS Safety Report 13878108 (Version 1)
Quarter: 2017Q3

REPORT INFORMATION
  Report Type: Report from Study
  Country: DE (occurrence: DE)
  Receive Date: 20170817
  Receipt Date: 20170817
  Transmission Date: 20171127
  Serious: Yes (Death, Congenital Anomaly, Other)
  Sender: FDA-Public Use
  Company Number: DE-MYLANLABS-2017M1050224

PATIENT

DRUGS (10)
  1. AMLODIPINE [Concomitant]
     Active Substance: AMLODIPINE BESYLATE
     Indication: HYPERTENSION
     Dosage: RECEIVED FROM 10-28 WEEK OF GESTATION
     Route: 064
  2. FENOTEROL [Concomitant]
     Active Substance: FENOTEROL
     Indication: TOCOLYSIS
     Dosage: RECEIVED IN 28TH WEEK OF GESTATION
     Route: 064
  3. METHYLDOPA. [Suspect]
     Active Substance: METHYLDOPA
     Indication: HYPERTENSION
     Dosage: 500MG/DAY
     Route: 064
  4. BETAMETHASONE. [Concomitant]
     Active Substance: BETAMETHASONE
     Indication: BACTERIAL INFECTION
     Dosage: RECEIVED FROM 25-28 WEEK OF GESTATION
     Route: 064
  5. NIFEDIPINE. [Concomitant]
     Active Substance: NIFEDIPINE
     Indication: TOCOLYSIS
     Dosage: RECEIVED FROM 25-28 WEEK OF GESTATION
     Route: 064
  6. LEVOTHYROXINE SODIUM. [Concomitant]
     Active Substance: LEVOTHYROXINE SODIUM
     Indication: HYPOTHYROIDISM
     Dosage: RECEIVED FROM 0-28 WEEK OF GESTATION
     Route: 064
  7. TACROLIMUS. [Concomitant]
     Active Substance: TACROLIMUS
     Indication: RENAL TRANSPLANT
     Dosage: RECEIVED FROM 0-28 WEEK OF GESTATION
     Route: 064
  8. AMPICILLIN [Concomitant]
     Active Substance: AMPICILLIN
     Indication: BACTERIAL INFECTION
     Dosage: RECEIVED IN 28TH WEEK OF GESTATION
     Route: 064
  9. METOPROLOL. [Concomitant]
     Active Substance: METOPROLOL
     Indication: HYPERTENSION
     Dosage: RECEIVED FROM 0-28 WEEK OF GESTATION
     Route: 064
  10. AZATHIOPRINE. [Concomitant]
     Active Substance: AZATHIOPRINE
     Indication: RENAL TRANSPLANT
     Dosage: RECEIVED FROM 0-28 WEEK OF GESTATION
     Route: 064

REACTIONS (5)
  - Congenital cystic lung [Unknown]
  - Hydrops foetalis [Unknown]
  - Respiratory failure [Fatal]
  - Pulmonary malformation [Unknown]
  - Foetal exposure during pregnancy [Unknown]
